FAERS Safety Report 5100594-7 (Version None)
Quarter: 2006Q3

REPORT INFORMATION
  Report Type: 
  Country: None (occurrence: None)
  Receive Date: 20060907
  Receipt Date: 20060907
  Transmission Date: 20061208
  Serious: No
  Sender: FDA-Public Use
  Company Number: None

PATIENT
  Sex: Male
  Weight: 88.5 kg

DRUGS (8)
  1. MIDAZOLAM HCL [Suspect]
     Indication: COLONOSCOPY
     Dosage: 2 MG 1 IV BOLUS
     Route: 030
     Dates: start: 20060823, end: 20060823
  2. MIDAZOLAM HCL [Suspect]
     Indication: SEDATION
     Dosage: 2 MG 1 IV BOLUS
     Route: 030
     Dates: start: 20060823, end: 20060823
  3. MIDAZOLAM HCL [Suspect]
     Dosage: 1 MG 2 IV BOLUS
     Route: 042
  4. FENTANYL [Concomitant]
  5. ALLEGRA-D 12 HOUR [Concomitant]
  6. PREVACID [Concomitant]
  7. VITAMIN E [Concomitant]
  8. NATURE'S CODE [Concomitant]

REACTIONS (4)
  - ANAESTHETIC COMPLICATION [None]
  - DISCOMFORT [None]
  - PHARMACEUTICAL PRODUCT COMPLAINT [None]
  - PROCEDURAL COMPLICATION [None]
